FAERS Safety Report 6248443-8 (Version None)
Quarter: 2009Q2

REPORT INFORMATION
  Report Type: 
  Country: None (occurrence: None)
  Receive Date: 20090625
  Receipt Date: 20090625
  Transmission Date: 20091009
  Serious: No
  Sender: FDA-Public Use
  Company Number: None

PATIENT
  Age: 57 Year
  Sex: Female
  Weight: 51.7101 kg

DRUGS (2)
  1. FLAGYL [Suspect]
     Indication: BACTERIAL TEST POSITIVE
     Dosage: 500 MG 1 TAB 3 X'S DAY BY MOUTH
     Route: 048
     Dates: start: 20090418, end: 20090423
  2. SULFAMETHOXAZOLE AND TRIMETHOPRIM [Suspect]
     Indication: BACTERIAL INFECTION
     Dosage: 800-160 TAB 1 TAB. 2X'S DAY BY MOUTH
     Route: 048
     Dates: start: 20090418, end: 20090428

REACTIONS (4)
  - ABDOMINAL DISCOMFORT [None]
  - BURNING SENSATION [None]
  - CHEST PAIN [None]
  - PAIN IN EXTREMITY [None]
